FAERS Safety Report 17798408 (Version 1)
Quarter: 2020Q2

REPORT INFORMATION
  Report Type: Spontaneous
  Country: CA (occurrence: CA)
  Receive Date: 20200518
  Receipt Date: 20200518
  Transmission Date: 20200714
  Serious: Yes (Other)
  Sender: FDA-Public Use
  Company Number: CA-JNJFOC-20200510183

PATIENT
  Age: 59 Year
  Sex: Female
  Weight: 63.56 kg

DRUGS (3)
  1. INVEGA SUSTENNA [Suspect]
     Active Substance: PALIPERIDONE PALMITATE
  2. INVEGA SUSTENNA [Suspect]
     Active Substance: PALIPERIDONE PALMITATE
     Route: 030
  3. INVEGA SUSTENNA [Suspect]
     Active Substance: PALIPERIDONE PALMITATE
     Indication: WITHDRAWAL SYNDROME
     Route: 030

REACTIONS (10)
  - Fibroadenoma of breast [Unknown]
  - Adverse event [Unknown]
  - Weight increased [Unknown]
  - Gait disturbance [Unknown]
  - Memory impairment [Unknown]
  - Product use in unapproved indication [Unknown]
  - Inappropriate schedule of product administration [Unknown]
  - Confusional state [Unknown]
  - Muscle rigidity [Unknown]
  - Off label use [Unknown]
